FAERS Safety Report 6648789-5 (Version None)
Quarter: 2010Q1

REPORT INFORMATION
  Report Type: 
  Country: None (occurrence: None)
  Receive Date: 20100324
  Receipt Date: 20100311
  Transmission Date: 20100710
  Serious: Yes (Hospitalization, Other)
  Sender: FDA-Public Use
  Company Number: PHHY2009JP59004

PATIENT
  Sex: Male
  Weight: 106 kg

DRUGS (6)
  1. EXJADE [Suspect]
     Indication: IRON OVERLOAD
     Dosage: 500 MG, BID
     Route: 048
     Dates: start: 20091216, end: 20091219
  2. EXJADE [Suspect]
     Indication: APLASTIC ANAEMIA
  3. NEORAL [Concomitant]
     Indication: APLASTIC ANAEMIA
     Dosage: 200 MG, UNK
     Route: 048
     Dates: start: 20090512, end: 20100126
  4. BAKTAR [Concomitant]
     Indication: PROPHYLAXIS
     Dosage: 4 DF, UNK
     Route: 048
     Dates: start: 20090420, end: 20100126
  5. ITRIZOLE [Concomitant]
     Dosage: 200 MG, UNK
     Route: 048
     Dates: start: 20090420, end: 20100126
  6. PRIMOBOLAN [Concomitant]
     Indication: APLASTIC ANAEMIA
     Dosage: 20 MG, UNK
     Route: 048
     Dates: start: 20090902, end: 20100126

REACTIONS (7)
  - EATING DISORDER [None]
  - HAEMATEMESIS [None]
  - OESOPHAGEAL RUPTURE [None]
  - OROPHARYNGEAL DISCOMFORT [None]
  - OROPHARYNGEAL PAIN [None]
  - SKIN FISSURES [None]
  - WRONG TECHNIQUE IN DRUG USAGE PROCESS [None]
